FAERS Safety Report 8758406 (Version 1)
Quarter: 2012Q4

REPORT INFORMATION
  Report Type: Spontaneous
  Country: US (occurrence: None)
  Receive Date: 20120828
  Receipt Date: 20120828
  Transmission Date: 20130627
  Serious: Yes (Hospitalization, Other)
  Sender: FDA-Public Use
  Company Number: None

PATIENT
  Age: 66 Year
  Sex: Female
  Weight: 73.48 kg

DRUGS (1)
  1. ALENDRONATE SODIUM [Suspect]
     Indication: OSTEOPENIA
     Route: 048
     Dates: start: 20110926, end: 20120512

REACTIONS (6)
  - Tendonitis [None]
  - Tendon rupture [None]
  - Arthritis [None]
  - Arthropathy [None]
  - Condition aggravated [None]
  - No therapeutic response [None]
